FAERS Safety Report 6310816-2 (Version None)
Quarter: 2009Q3

REPORT INFORMATION
  Report Type: 
  Country: None (occurrence: None)
  Receive Date: 20090812
  Receipt Date: 20090728
  Transmission Date: 20100115
  Serious: Yes (Other)
  Sender: FDA-Public Use
  Company Number: MC200900276

PATIENT

DRUGS (3)
  1. CLEVIPREX [Suspect]
     Indication: BLOOD PRESSURE MANAGEMENT
     Dosage: 2 MG/ML, BOLUS, INTRAVENOUS
     Route: 042
  2. CLEVIPREX [Suspect]
     Indication: CARDIAC OPERATION
     Dosage: 2 MG/ML, BOLUS, INTRAVENOUS
     Route: 042
  3. BETA BLOCKING AGENTS [Suspect]
     Indication: DRUG USE FOR UNKNOWN INDICATION

REACTIONS (3)
  - BLOOD PRESSURE SYSTOLIC INCREASED [None]
  - HEART RATE DECREASED [None]
  - INCORRECT DOSE ADMINISTERED [None]
